FAERS Safety Report 4347717-5 (Version None)
Quarter: 2004Q1

REPORT INFORMATION
  Report Type: 
  Country: None (occurrence: None)
  Receive Date: 20040325
  Receipt Date: 20031210
  Transmission Date: 20041129
  Serious: No
  Sender: FDA-Public Use
  Company Number: USA031254510

PATIENT
  Age: 81 Year
  Sex: Female

DRUGS (4)
  1. FORTEO [Suspect]
     Indication: BONE DENSITY DECREASED
     Dosage: 20 UG/DAY
     Dates: start: 20030801
  2. EVISTA [Suspect]
     Dates: start: 20010101, end: 20030801
  3. ACTONEL [Concomitant]
  4. NEXIUM [Concomitant]

REACTIONS (3)
  - BONE DENSITY DECREASED [None]
  - MUSCLE CRAMP [None]
  - POLLAKIURIA [None]
